FAERS Safety Report 25176830 (Version 1)
Quarter: 2025Q2

REPORT INFORMATION
  Report Type: Spontaneous
  Country: CZ (occurrence: CZ)
  Receive Date: 20250409
  Receipt Date: 20250409
  Transmission Date: 20250717
  Serious: Yes (Other)
  Sender: BIOVITRUM
  Company Number: CZ-BIOVITRUM-2025-CZ-004851

PATIENT
  Age: 45 Year
  Sex: Male

DRUGS (1)
  1. ANAKINRA [Suspect]
     Active Substance: ANAKINRA
     Indication: Neurotoxicity

REACTIONS (3)
  - Off label use [Unknown]
  - Bacterial sepsis [Recovered/Resolved]
  - Cytopenia [Recovered/Resolved]
